FAERS Safety Report 15622031 (Version 1)
Quarter: 2018Q4

REPORT INFORMATION
  Report Type: Spontaneous
  Country: BR (occurrence: BR)
  Receive Date: 20181115
  Receipt Date: 20181115
  Transmission Date: 20190205
  Serious: Yes (Other)
  Sender: FDA-Public Use
  Company Number: BR-PFIZER INC-2018334124

PATIENT
  Age: 80 Year
  Sex: Female

DRUGS (3)
  1. FRONTAL XR [Suspect]
     Active Substance: ALPRAZOLAM
     Dosage: 2 MG, DAILY
  2. FRONTAL XR [Suspect]
     Active Substance: ALPRAZOLAM
     Indication: DEPRESSION
     Dosage: UNK
     Dates: end: 201807
  3. FRONTAL XR [Suspect]
     Active Substance: ALPRAZOLAM
     Indication: ANXIETY
     Dosage: 1 MG, DAILY

REACTIONS (6)
  - Drug ineffective [Not Recovered/Not Resolved]
  - Drooling [Not Recovered/Not Resolved]
  - Abdominal pain upper [Not Recovered/Not Resolved]
  - Diabetes mellitus [Not Recovered/Not Resolved]
  - Ischaemia [Recovered/Resolved]
  - Vomiting [Not Recovered/Not Resolved]

NARRATIVE: CASE EVENT DATE: 2016
